FAERS Safety Report 7033985-8 (Version None)
Quarter: 2010Q4

REPORT INFORMATION
  Report Type: 
  Country: None (occurrence: None)
  Receive Date: 20101005
  Receipt Date: 20091119
  Transmission Date: 20110411
  Serious: Yes (Disabling)
  Sender: FDA-Public Use
  Company Number: APP200900304

PATIENT
  Age: 42 Year
  Sex: Male

DRUGS (19)
  1. BUPIVACAINE HYDROCHLORIDE AND EPINEPHRINE [Suspect]
     Indication: MUSCULOSKELETAL PAIN
     Dosage: SEE IMAGE, INTRA-ARTICULAR
     Route: 014
     Dates: start: 20010221
  2. BUPIVACAINE HYDROCHLORIDE AND EPINEPHRINE [Suspect]
     Indication: PREMEDICATION
     Dosage: SEE IMAGE, INTRA-ARTICULAR
     Route: 014
     Dates: start: 20010221
  3. BUPIVACAINE HYDROCHLORIDE AND EPINEPHRINE [Suspect]
     Indication: MUSCULOSKELETAL PAIN
     Dosage: SEE IMAGE, INTRA-ARTICULAR
     Route: 014
     Dates: start: 20020221
  4. BUPIVACAINE HYDROCHLORIDE AND EPINEPHRINE [Suspect]
     Indication: PREMEDICATION
     Dosage: SEE IMAGE, INTRA-ARTICULAR
     Route: 014
     Dates: start: 20020221
  5. BUPIVACAINE HYDROCHLORIDE AND EPINEPHRINE [Suspect]
     Indication: MUSCULOSKELETAL PAIN
     Dosage: SEE IMAGE, INTRA-ARTICULAR
     Route: 014
     Dates: start: 20020221
  6. BUPIVACAINE HYDROCHLORIDE AND EPINEPHRINE [Suspect]
     Indication: PREMEDICATION
     Dosage: SEE IMAGE, INTRA-ARTICULAR
     Route: 014
     Dates: start: 20020221
  7. BUPIVACAINE HYDROCHLORIDE AND EPINEPHRINE [Suspect]
     Indication: MUSCULOSKELETAL PAIN
     Dosage: SEE IMAGE, INTRA-ARTICULAR
     Route: 014
     Dates: start: 20021205
  8. BUPIVACAINE HYDROCHLORIDE AND EPINEPHRINE [Suspect]
     Indication: PREMEDICATION
     Dosage: SEE IMAGE, INTRA-ARTICULAR
     Route: 014
     Dates: start: 20021205
  9. BUPIVACAINE HYDROCHLORIDE AND EPINEPHRINE [Suspect]
     Indication: MUSCULOSKELETAL PAIN
     Dosage: SEE IMAGE, INTRA-ARTICULAR
     Route: 014
     Dates: start: 20040401
  10. BUPIVACAINE HYDROCHLORIDE AND EPINEPHRINE [Suspect]
     Indication: PREMEDICATION
     Dosage: SEE IMAGE, INTRA-ARTICULAR
     Route: 014
     Dates: start: 20040401
  11. SENSORCAINE [Suspect]
     Indication: MUSCULOSKELETAL PAIN
     Dosage: CONTINUOUS VIA PUMP, LOCAL INFILTRATION, 20 ML, LOCAL INFILTRATION
     Dates: start: 20021205
  12. SENSORCAINE [Suspect]
     Indication: MUSCULOSKELETAL PAIN
     Dosage: CONTINUOUS VIA PUMP, LOCAL INFILTRATION, 20 ML, LOCAL INFILTRATION
     Dates: start: 20021205
  13. SENSORCAINE [Suspect]
     Indication: MUSCULOSKELETAL PAIN
     Dosage: CONTINUOUS VIA PUMP, LOCAL INFILTRATION, 20 ML, LOCAL INFILTRATION
     Dates: start: 20040401
  14. NAROPIN [Suspect]
     Indication: MUSCULOSKELETAL PAIN
     Dosage: 400 ML, CONTINUOUS VIA PUMP RIGHT SHOULDER
  15. STRYKER PAIN PUMP [Suspect]
     Indication: MUSCULOSKELETAL PAIN
     Dates: start: 20020221
  16. STRYKER PAIN PUMP [Suspect]
     Indication: MUSCULOSKELETAL PAIN
     Dates: start: 20021205
  17. STRYKER PAIN PUMP [Suspect]
     Indication: MUSCULOSKELETAL PAIN
     Dates: start: 20040401
  18. PAIN PUMP [Suspect]
     Indication: MUSCULOSKELETAL PAIN
     Dates: start: 20090408
  19. ANCEF [Concomitant]

REACTIONS (6)
  - BONE CYST [None]
  - CHONDROLYSIS [None]
  - MUSCULOSKELETAL PAIN [None]
  - OSTEOARTHRITIS [None]
  - SHOULDER ARTHROPLASTY [None]
  - TENDONITIS [None]
